FAERS Safety Report 5608750-6 (Version None)
Quarter: 2008Q1

REPORT INFORMATION
  Report Type: 
  Country: None (occurrence: None)
  Receive Date: 20080129
  Receipt Date: 20080129
  Transmission Date: 20080703
  Serious: Yes (Other)
  Sender: FDA-Public Use
  Company Number: None

PATIENT
  Age: 55 Year
  Sex: Male
  Weight: 82.5 kg

DRUGS (2)
  1. DURAGESIC-50 [Suspect]
     Indication: PROCEDURAL PAIN
     Dosage: 100 MCG/HR Q 3 DAYS TRANSDERMAL
     Route: 062
     Dates: start: 20080104, end: 20080105
  2. HYDROMORPHONE HCL [Suspect]
     Indication: PROCEDURAL PAIN
     Dosage: 2MG Q 6 HOURS PRN IV
     Route: 042
     Dates: start: 20080104, end: 20080105

REACTIONS (15)
  - ANXIETY [None]
  - BLOOD PRESSURE INCREASED [None]
  - DEPRESSED LEVEL OF CONSCIOUSNESS [None]
  - DISORIENTATION [None]
  - HEART RATE INCREASED [None]
  - LETHARGY [None]
  - MEDICATION ERROR [None]
  - MOANING [None]
  - OXYGEN SATURATION DECREASED [None]
  - PAIN [None]
  - RESTLESSNESS [None]
  - SEDATION [None]
  - SNORING [None]
  - SOMNOLENCE [None]
  - UNRESPONSIVE TO STIMULI [None]
